FAERS Safety Report 17488114 (Version 1)
Quarter: 2020Q1

REPORT INFORMATION
  Report Type: Spontaneous
  Country: US (occurrence: US)
  Receive Date: 20200303
  Receipt Date: 20200303
  Transmission Date: 20200409
  Serious: Yes (Hospitalization)
  Sender: FDA-Public Use
  Company Number: US-PFIZER INC-2020093289

PATIENT
  Age: 62 Year
  Sex: Male

DRUGS (2)
  1. PREGABALIN. [Suspect]
     Active Substance: PREGABALIN
     Indication: NEURALGIA
     Dosage: 150 MG, 2X/DAY
  2. PREGABALIN. [Suspect]
     Active Substance: PREGABALIN
     Dosage: 300 MG, UNK

REACTIONS (7)
  - Loss of personal independence in daily activities [Unknown]
  - Feeling abnormal [Unknown]
  - Creatinine renal clearance abnormal [Unknown]
  - Thinking abnormal [Unknown]
  - Gait inability [Unknown]
  - Acute kidney injury [Recovering/Resolving]
  - Decreased appetite [Unknown]
